FAERS Safety Report 5373063-7 (Version None)
Quarter: 2007Q2

REPORT INFORMATION
  Report Type: 
  Country: None (occurrence: None)
  Receive Date: 20070626
  Receipt Date: 20070615
  Transmission Date: 20071010
  Serious: Yes (Other)
  Sender: FDA-Public Use
  Company Number: 234387K07USA

PATIENT
  Age: 56 Year
  Sex: Female
  Weight: 71.6683 kg

DRUGS (16)
  1. REBIF [Suspect]
     Indication: MULTIPLE SCLEROSIS
     Dosage: 44 MCG, 3 IN 1 WEEKS, SUBCUTANEOUS
     Route: 058
     Dates: start: 20050923
  2. ATENOL (ATENOLOL) [Concomitant]
  3. NORVASC [Concomitant]
  4. NORCO [Concomitant]
  5. PREMARIN [Concomitant]
  6. CLARINEX (NARINE) [Concomitant]
  7. METHOCARBAMOL [Concomitant]
  8. BUTALBITAL (BUTALBITAL) [Concomitant]
  9. FIORICET (AXOTAL) [Concomitant]
  10. COMPAZINE [Concomitant]
  11. AMBIEN [Concomitant]
  12. NASACORT AQ [Concomitant]
  13. CENTRUM (CENTRUM) [Concomitant]
  14. STOOL SOFTENER/LAXATIVE (LAXATIVES) [Concomitant]
  15. MIRALAX [Concomitant]
  16. PROVIGIL [Concomitant]

REACTIONS (5)
  - ABNORMAL SENSATION IN EYE [None]
  - BLINDNESS UNILATERAL [None]
  - EYE PAIN [None]
  - RETINAL HAEMORRHAGE [None]
  - RETINAL TEAR [None]
